FAERS Safety Report 13683870 (Version 1)
Quarter: 2017Q2

REPORT INFORMATION
  Report Type: Spontaneous
  Country: US (occurrence: US)
  Receive Date: 20170623
  Receipt Date: 20170623
  Transmission Date: 20170830
  Serious: No
  Sender: FDA-Public Use
  Company Number: US-PFIZER INC-2017267590

PATIENT
  Sex: Female

DRUGS (1)
  1. LYRICA [Suspect]
     Active Substance: PREGABALIN
     Indication: PROCTALGIA
     Dosage: UNK

REACTIONS (7)
  - Tremor [Unknown]
  - Paraesthesia oral [Unknown]
  - Product use in unapproved indication [Unknown]
  - Drug hypersensitivity [Unknown]
  - Urticaria [Unknown]
  - Palpitations [Unknown]
  - Heart rate decreased [Unknown]
